FAERS Safety Report 19314795 (Version 1)
Quarter: 2021Q2

REPORT INFORMATION
  Report Type: Spontaneous
  Country: US (occurrence: US)
  Receive Date: 20210527
  Receipt Date: 20210527
  Transmission Date: 20210717
  Serious: No
  Sender: FDA-Public Use
  Company Number: US-SA-2021SA172697

PATIENT
  Age: 61 Year
  Sex: Male

DRUGS (4)
  1. DUPIXENT [Suspect]
     Active Substance: DUPILUMAB
     Indication: ILLNESS
     Dosage: 600 MG, 1X
     Route: 065
     Dates: start: 20210516, end: 20210516
  2. DUPIXENT [Suspect]
     Active Substance: DUPILUMAB
     Indication: DERMATITIS ATOPIC
  3. SINGULAIR [Concomitant]
     Active Substance: MONTELUKAST SODIUM
  4. PREDNISONE. [Concomitant]
     Active Substance: PREDNISONE

REACTIONS (6)
  - Dry skin [Unknown]
  - Eczema [Unknown]
  - Skin exfoliation [Unknown]
  - Skin haemorrhage [Unknown]
  - Product use in unapproved indication [Unknown]
  - Pruritus [Unknown]

NARRATIVE: CASE EVENT DATE: 202105
